FAERS Safety Report 4295370-1 (Version None)
Quarter: 2004Q1

REPORT INFORMATION
  Report Type: 
  Country: None (occurrence: None)
  Receive Date: 20040216
  Receipt Date: 20030702
  Transmission Date: 20041129
  Serious: No
  Sender: FDA-Public Use
  Company Number: US-GLAXOSMITHKLINE-A0414903A

PATIENT
  Age: 60 Year
  Sex: Male

DRUGS (3)
  1. LAMICTAL [Suspect]
     Indication: BIPOLAR DISORDER
     Dosage: 175MG TWICE PER DAY
     Route: 048
     Dates: start: 20030227, end: 20030612
  2. ATIVAN [Concomitant]
     Dosage: .5MG AT NIGHT
     Route: 048
  3. SYNTHROID [Concomitant]
     Dosage: .25MG PER DAY
     Route: 048

REACTIONS (1)
  - RASH MACULO-PAPULAR [None]
